FAERS Safety Report 7972710-0 (Version None)
Quarter: 2011Q4

REPORT INFORMATION
  Report Type: 
  Country: None (occurrence: None)
  Receive Date: 20111213
  Receipt Date: 20111202
  Transmission Date: 20120403
  Serious: Yes (Hospitalization)
  Sender: FDA-Public Use
  Company Number: DE-ROCHE-1019304

PATIENT
  Age: 79 Year
  Sex: Female
  Weight: 83 kg

DRUGS (11)
  1. BERLOSIN [Concomitant]
  2. ASPIRIN [Concomitant]
  3. PREDNISOLONE [Concomitant]
  4. SPIRONOLACTONE [Concomitant]
  5. TORSEMIDE [Concomitant]
  6. BELOC MITE [Concomitant]
  7. PANTOPRAZOLE SODIUM [Concomitant]
  8. BONIVA [Suspect]
     Indication: OSTEOPOROSIS
     Route: 042
     Dates: start: 20100511
  9. L-THYROX [Concomitant]
  10. OLMESARTAN MEDOXOMIL [Concomitant]
  11. SIMVASTATIN [Concomitant]

REACTIONS (1)
  - SYNCOPE [None]
